FAERS Safety Report 5999733-5 (Version None)
Quarter: 2008Q4

REPORT INFORMATION
  Report Type: 
  Country: None (occurrence: None)
  Receive Date: 20081215
  Receipt Date: 20081205
  Transmission Date: 20090506
  Serious: Yes (Hospitalization)
  Sender: FDA-Public Use
  Company Number: US-PFIZER INC-2008090886

PATIENT
  Sex: Male
  Weight: 99.32 kg

DRUGS (23)
  1. BLINDED *PLACEBO [Suspect]
     Indication: OSTEOARTHRITIS
     Dosage: UNK
     Route: 048
     Dates: start: 20070601, end: 20081026
  2. CELECOXIB [Suspect]
     Indication: OSTEOARTHRITIS
     Dosage: UNK
     Route: 048
     Dates: start: 20070601, end: 20081026
  3. BLINDED IBUPROFEN [Suspect]
     Indication: OSTEOARTHRITIS
     Dosage: UNK
     Route: 048
     Dates: start: 20070601, end: 20081026
  4. BLINDED NAPROXEN [Suspect]
     Indication: OSTEOARTHRITIS
     Dosage: UNK
     Route: 048
     Dates: start: 20070601, end: 20081026
  5. BLINDED *PLACEBO [Suspect]
     Indication: RHEUMATOID ARTHRITIS
  6. CELECOXIB [Suspect]
     Indication: RHEUMATOID ARTHRITIS
  7. BLINDED IBUPROFEN [Suspect]
     Indication: RHEUMATOID ARTHRITIS
  8. BLINDED NAPROXEN [Suspect]
     Indication: RHEUMATOID ARTHRITIS
  9. ESOMEPRAZOLE [Concomitant]
     Dosage: 40 MG, EVERY DAY
     Route: 048
     Dates: start: 20070601, end: 20081026
  10. DUONEB [Concomitant]
     Indication: CHRONIC OBSTRUCTIVE PULMONARY DISEASE
     Dosage: 3 ML, AS NEEDED
     Dates: start: 20060420
  11. DILTIAZEM [Concomitant]
     Indication: HYPERTENSION
     Dosage: 180 MG, 2X/DAY
     Dates: start: 20060420
  12. FUROSEMIDE [Concomitant]
     Indication: OEDEMA
     Dosage: 20 MG, 2X/DAY
     Dates: start: 20060420
  13. IPRATROPIUM BROMIDE [Concomitant]
     Indication: CHRONIC OBSTRUCTIVE PULMONARY DISEASE
     Dosage: 34 UG, AS NEEDED
     Dates: start: 20060420
  14. XOPENEX [Concomitant]
     Indication: CHRONIC OBSTRUCTIVE PULMONARY DISEASE
     Dosage: 59 UG, AS NEEDED
     Dates: start: 20060420
  15. LISINOPRIL [Concomitant]
     Indication: HYPERTENSION
     Dosage: 20 MG, 1X/DAY
     Dates: start: 20060420
  16. NITROGLYCERIN [Concomitant]
     Indication: PROPHYLAXIS
     Dosage: 0.4 MG, AS NEEDED
     Dates: start: 20060401
  17. POTASSIUM CHLORIDE [Concomitant]
     Indication: SUPPLEMENTATION THERAPY
     Dosage: 8 UG, 2X/DAY
     Dates: start: 20070123
  18. PREDNISONE TAB [Concomitant]
     Indication: PROPHYLAXIS
     Dosage: 10 MG, 1X/DAY
     Dates: start: 20060420
  19. SERTRALINE [Concomitant]
     Indication: DEPRESSION
     Dosage: 25 MG, AS NEEDED
     Dates: start: 20060427
  20. SIMVASTATIN [Concomitant]
     Indication: DYSLIPIDAEMIA
     Dosage: 20 MG, 1X/DAY
     Dates: start: 20061207
  21. OXYGEN [Concomitant]
     Indication: CHRONIC OBSTRUCTIVE PULMONARY DISEASE
     Dosage: 24 HOURS A DAY
     Dates: start: 20020101
  22. MOMETASONE [Concomitant]
     Indication: CHRONIC OBSTRUCTIVE PULMONARY DISEASE
     Dosage: 220 UG, 1X/DAY
     Dates: start: 20071030
  23. LORTAB [Concomitant]
     Indication: BACK PAIN
     Dosage: 5/500 MG, AS NEEDED
     Dates: start: 20070924

REACTIONS (2)
  - ATRIAL FIBRILLATION [None]
  - SYNCOPE [None]
